FAERS Safety Report 8470205-1 (Version None)
Quarter: 2012Q2

REPORT INFORMATION
  Report Type: 
  Country: None (occurrence: None)
  Receive Date: 20120621
  Receipt Date: 20120621
  Transmission Date: 20120825
  Serious: Yes (Other)
  Sender: FDA-Public Use
  Company Number: None

PATIENT
  Sex: Male
  Weight: 43.5 kg

DRUGS (2)
  1. DEXTROMETHORPHAN HYDROBROMIDE [Suspect]
     Dosage: 30 MG TABLETS TWICE IN 48 HOURS ORAL
     Route: 048
     Dates: start: 20110830
  2. DEXTROMETHORPHAN HYDROBROMIDE [Suspect]
     Dosage: 30 MG TABLETS TWICE IN 48 HOURS ORAL
     Route: 048
     Dates: start: 20110901

REACTIONS (1)
  - ABNORMAL BEHAVIOUR [None]
